FAERS Safety Report 11540535 (Version 1)
Quarter: 2015Q3

REPORT INFORMATION
  Report Type: Spontaneous
  Country: US (occurrence: US)
  Receive Date: 20150923
  Receipt Date: 20150923
  Transmission Date: 20151125
  Serious: No
  Sender: FDA-Public Use
  Company Number: US-BEH-2015049339

PATIENT
  Age: 65 Year
  Sex: Female
  Weight: 59 kg

DRUGS (15)
  1. CALCIUM+D [Concomitant]
  2. PRIVIGEN [Suspect]
     Active Substance: HUMAN IMMUNOGLOBULIN G
     Indication: IMMUNODEFICIENCY COMMON VARIABLE
     Route: 042
  3. DIFLUCAN [Concomitant]
     Active Substance: FLUCONAZOLE
  4. CIPRO [Concomitant]
     Active Substance: CIPROFLOXACIN HYDROCHLORIDE
  5. DIPHENHYDRAMINE. [Concomitant]
     Active Substance: DIPHENHYDRAMINE
  6. ESTRACE [Concomitant]
     Active Substance: ESTRADIOL
  7. SODIUM CHLORIDE. [Concomitant]
     Active Substance: SODIUM CHLORIDE
  8. MACROBID [Concomitant]
     Active Substance: NITROFURANTOIN\NITROFURANTOIN MONOHYDRATE
  9. LEVAQUIN [Concomitant]
     Active Substance: LEVOFLOXACIN
  10. EPIPEN [Concomitant]
     Active Substance: EPINEPHRINE
  11. AMBIEN [Concomitant]
     Active Substance: ZOLPIDEM TARTRATE
  12. SYNTHROID [Concomitant]
     Active Substance: LEVOTHYROXINE SODIUM
  13. PYRIDIUM [Concomitant]
     Active Substance: PHENAZOPYRIDINE
  14. ADVAIR HFA [Concomitant]
     Active Substance: FLUTICASONE PROPIONATE\SALMETEROL XINAFOATE
  15. TRICOR [Concomitant]
     Active Substance: FENOFIBRATE

REACTIONS (1)
  - Cystitis [Unknown]

NARRATIVE: CASE EVENT DATE: 20150208
